FAERS Safety Report 14937822 (Version 1)
Quarter: 2018Q2

REPORT INFORMATION
  Report Type: Spontaneous
  Country: US (occurrence: US)
  Receive Date: 20180507
  Receipt Date: 20180507
  Transmission Date: 20180711
  Serious: Yes (Disabling, Other)
  Sender: FDA-Public Use
  Company Number: None

PATIENT
  Age: 56 Year
  Sex: Female
  Weight: 83.25 kg

DRUGS (11)
  1. K2 [Concomitant]
     Active Substance: JWH-018
  2. MULTIVITAMINS [Concomitant]
     Active Substance: VITAMINS
  3. COLLAGEN [Concomitant]
     Active Substance: COLLAGEN
  4. MEDICAL CBD [Concomitant]
  5. TURMERIC [Concomitant]
     Active Substance: HERBALS\TURMERIC
  6. VITAMIN D3 [Concomitant]
     Active Substance: CHOLECALCIFEROL
  7. COENZYME Q10 [Concomitant]
     Active Substance: UBIDECARENONE
  8. LOW INDICA THC [Concomitant]
  9. CIPROFLOXACIN. [Suspect]
     Active Substance: CIPROFLOXACIN
     Indication: SINUSITIS
     Dosage: ?          QUANTITY:20 DF DOSAGE FORM;?
     Route: 048
     Dates: start: 20170418, end: 20170421
  10. MAGNESIUM [Concomitant]
     Active Substance: MAGNESIUM
  11. PROBIOTICS [Concomitant]
     Active Substance: PROBIOTICS NOS

REACTIONS (17)
  - Spinal pain [None]
  - Feeling abnormal [None]
  - Headache [None]
  - Tendon disorder [None]
  - Urticaria [None]
  - Amnesia [None]
  - Cerebral disorder [None]
  - Nerve injury [None]
  - Arthropathy [None]
  - Contusion [None]
  - Insomnia [None]
  - Burning sensation [None]
  - Pain [None]
  - Lupus-like syndrome [None]
  - Fatigue [None]
  - Alopecia [None]
  - Candida infection [None]

NARRATIVE: CASE EVENT DATE: 20170421
